FAERS Safety Report 18660812 (Version 1)
Quarter: 2020Q4

REPORT INFORMATION
  Report Type: Spontaneous
  Country: DE (occurrence: TW)
  Receive Date: 20201224
  Receipt Date: 20201224
  Transmission Date: 20210114
  Serious: Yes (Other)
  Sender: FDA-Public Use
  Company Number: TW-ELI_LILLY_AND_COMPANY-TW202012011894

PATIENT
  Age: 78 Year
  Sex: Male
  Weight: 63 kg

DRUGS (12)
  1. 5-FU [FLUOROURACIL] [Concomitant]
     Active Substance: FLUOROURACIL
     Dosage: 825-835MG
     Dates: start: 20180823
  2. 5-FU [FLUOROURACIL] [Concomitant]
     Active Substance: FLUOROURACIL
     Dosage: 825 MG, UNK
     Dates: start: 20181004, end: 20181004
  3. KEMOPLAT [Concomitant]
     Active Substance: CISPLATIN
     Dosage: 50 MG, UNK
     Route: 041
     Dates: start: 20181004, end: 20181004
  4. ERBITUX [Suspect]
     Active Substance: CETUXIMAB
     Indication: GINGIVAL CANCER
     Dosage: 700 MG, UNK
     Route: 041
     Dates: start: 20180628
  5. 5-FU [FLUOROURACIL] [Concomitant]
     Active Substance: FLUOROURACIL
     Dosage: 810 MG, UNK
     Dates: start: 20180716
  6. ERBITUX [Suspect]
     Active Substance: CETUXIMAB
     Dosage: 800 MG, UNK
     Route: 041
     Dates: start: 20180802
  7. ERBITUX [Suspect]
     Active Substance: CETUXIMAB
     Dosage: 700 MG, UNK
     Route: 041
     Dates: start: 20180823, end: 20181004
  8. KEMOPLAT [Concomitant]
     Active Substance: CISPLATIN
     Indication: GINGIVAL CANCER
     Dosage: 83.5 MG, UNK
     Route: 041
     Dates: start: 20180604
  9. 5-FU [FLUOROURACIL] [Concomitant]
     Active Substance: FLUOROURACIL
     Indication: GINGIVAL CANCER
     Dosage: 835 MG, UNK
     Dates: start: 20180604
  10. KEMOPLAT [Concomitant]
     Active Substance: CISPLATIN
     Dosage: 60 MG, UNK
     Route: 041
     Dates: start: 20180802
  11. 5-FU [FLUOROURACIL] [Concomitant]
     Active Substance: FLUOROURACIL
     Dosage: 820 MG, UNK
     Dates: start: 20180628
  12. KEMOPLAT [Concomitant]
     Active Substance: CISPLATIN
     Dosage: 82 MG, UNK
     Route: 041
     Dates: start: 20180628

REACTIONS (6)
  - Alopecia [Unknown]
  - Nausea [Unknown]
  - Fatigue [Unknown]
  - Infusion related reaction [Recovered/Resolved]
  - Anaemia [Unknown]
  - Vomiting [Unknown]

NARRATIVE: CASE EVENT DATE: 2018
